FAERS Safety Report 4692305-4 (Version None)
Quarter: 2005Q2

REPORT INFORMATION
  Report Type: 
  Country: None (occurrence: None)
  Receive Date: 20050616
  Receipt Date: 20050527
  Transmission Date: 20051028
  Serious: Yes (Death, Other)
  Sender: FDA-Public Use
  Company Number: EWC050644273

PATIENT
  Age: 29 Year
  Sex: Male
  Weight: 90 kg

DRUGS (6)
  1. ZYPREXA [Suspect]
     Indication: PSYCHOTIC DISORDER
     Dosage: 30 MG/1 DAY
     Dates: start: 20050101
  2. HALOPERIDOL [Concomitant]
  3. CHLORPROMAZINE [Concomitant]
  4. BIPERIDEN HYDROCHLORIDE TAB [Concomitant]
  5. LORAZEPAM [Concomitant]
  6. ALBUTEROL [Concomitant]

REACTIONS (7)
  - ARRHYTHMIA [None]
  - ASTHMA [None]
  - CARDIAC ARREST [None]
  - CONDITION AGGRAVATED [None]
  - PALPITATIONS [None]
  - PRESCRIBED OVERDOSE [None]
  - SUDDEN DEATH [None]
